FAERS Safety Report 25875179 (Version 1)
Quarter: 2025Q4

REPORT INFORMATION
  Report Type: Report from Study
  Country: PK (occurrence: PK)
  Receive Date: 20251003
  Receipt Date: 20251003
  Transmission Date: 20260117
  Serious: Yes (Death)
  Sender: ROCHE
  Company Number: PK-ROCHE-10000394978

PATIENT
  Age: 49 Year
  Sex: Male

DRUGS (1)
  1. AVASTIN [Suspect]
     Active Substance: BEVACIZUMAB
     Indication: Glioblastoma
     Route: 042
     Dates: start: 20250820

REACTIONS (6)
  - Death [Fatal]
  - Pyrexia [Unknown]
  - Vomiting [Unknown]
  - Pain in extremity [Unknown]
  - Dizziness [Unknown]
  - Immobile [Unknown]

NARRATIVE: CASE EVENT DATE: 20250820
